FAERS Safety Report 20463205 (Version 1)
Quarter: 2022Q1

REPORT INFORMATION
  Report Type: Report from Study
  Country: IT (occurrence: IT)
  Receive Date: 20220211
  Receipt Date: 20220211
  Transmission Date: 20220424
  Serious: Yes (Other)
  Sender: FDA-Public Use
  Company Number: None

PATIENT
  Age: 75 Year
  Sex: Female

DRUGS (4)
  1. BISOPROLOL [Suspect]
     Active Substance: BISOPROLOL
     Indication: Product used for unknown indication
     Dosage: UNIT DOSE 5MG
     Route: 048
     Dates: start: 20210101, end: 20211223
  2. IRBESARTAN [Concomitant]
     Active Substance: IRBESARTAN
     Dosage: UNIT DOSE 300MG
  3. MEMANTINE HYDROCHLORIDE [Concomitant]
     Active Substance: MEMANTINE HYDROCHLORIDE
     Dosage: UNIT DOSE 2 DOSAGE FORMS
  4. ASPIRIN [Concomitant]
     Active Substance: ASPIRIN
     Dosage: CARDIOASPIRIN 100 MG GASTRORESISTANT TABLETS,UNIT DOSE 1 DOSAGE FORM

REACTIONS (2)
  - Sinus bradycardia [Recovered/Resolved]
  - Syncope [Recovered/Resolved]

NARRATIVE: CASE EVENT DATE: 20211223
